FAERS Safety Report 7638256-4 (Version None)
Quarter: 2011Q3

REPORT INFORMATION
  Report Type: 
  Country: None (occurrence: None)
  Receive Date: 20110727
  Receipt Date: 20110718
  Transmission Date: 20111222
  Serious: Yes (Hospitalization)
  Sender: FDA-Public Use
  Company Number: US-NOVOPROD-332218

PATIENT
  Sex: Female

DRUGS (2)
  1. NOVOLOG [Suspect]
     Indication: DIABETES MELLITUS
     Route: 058
  2. APIDRA [Concomitant]
     Indication: DIABETES MELLITUS

REACTIONS (5)
  - SEPSIS [None]
  - HYPOTHERMIA [None]
  - RESPIRATORY FAILURE [None]
  - DIABETIC KETOACIDOSIS [None]
  - DEVICE FAILURE [None]
